FAERS Safety Report 9602006 (Version 1)
Quarter: 2013Q4

REPORT INFORMATION
  Report Type: Report from Study
  Country: AR (occurrence: AR)
  Receive Date: 20131007
  Receipt Date: 20131007
  Transmission Date: 20140711
  Serious: Yes (Other)
  Sender: FDA-Public Use
  Company Number: PHHY2013AR111525

PATIENT
  Sex: Female

DRUGS (1)
  1. EXFORGE D [Suspect]
     Indication: HYPERTENSION
     Dosage: 1 DF (320MG VALS/ 10MG AMLO/ 25MG HCTZ), PER DAY
     Route: 048

REACTIONS (2)
  - Endometrial hypertrophy [Not Recovered/Not Resolved]
  - Blood pressure systolic increased [Recovered/Resolved]
